FAERS Safety Report 24655169 (Version 2)
Quarter: 2024Q4

REPORT INFORMATION
  Report Type: Spontaneous
  Country: RU (occurrence: RU)
  Receive Date: 20241123
  Receipt Date: 20241205
  Transmission Date: 20250114
  Serious: Yes (Other)
  Sender: ALEXION PHARMACEUTICALS
  Company Number: RU-ASTRAZENECA-202411RUS014123RU

PATIENT
  Age: 36 Year

DRUGS (27)
  1. SYMBICORT [Suspect]
     Active Substance: BUDESONIDE\FORMOTEROL FUMARATE DIHYDRATE
     Indication: Asthma
     Dosage: UNK
  2. SYMBICORT [Suspect]
     Active Substance: BUDESONIDE\FORMOTEROL FUMARATE DIHYDRATE
     Dosage: UNK
  3. SYMBICORT [Suspect]
     Active Substance: BUDESONIDE\FORMOTEROL FUMARATE DIHYDRATE
     Dosage: UNK
  4. SYMBICORT [Suspect]
     Active Substance: BUDESONIDE\FORMOTEROL FUMARATE DIHYDRATE
     Dosage: UNK
  5. PULMICORT TURBUHALER [Suspect]
     Active Substance: BUDESONIDE
     Indication: Asthma
  6. PULMICORT TURBUHALER [Suspect]
     Active Substance: BUDESONIDE
  7. PULMICORT TURBUHALER [Suspect]
     Active Substance: BUDESONIDE
  8. PULMICORT TURBUHALER [Suspect]
     Active Substance: BUDESONIDE
  9. PREDNISOLONE [Concomitant]
     Active Substance: PREDNISOLONE
  10. PREDNISOLONE [Concomitant]
     Active Substance: PREDNISOLONE
     Route: 065
  11. AMINOPHYLLINE [Concomitant]
     Active Substance: AMINOPHYLLINE
  12. AMINOPHYLLINE [Concomitant]
     Active Substance: AMINOPHYLLINE
     Route: 065
  13. MEBHYDROLIN [Concomitant]
     Active Substance: MEBHYDROLIN
  14. MEBHYDROLIN [Concomitant]
     Active Substance: MEBHYDROLIN
     Route: 065
  15. CHLOROPYRAMINE [Concomitant]
     Active Substance: CHLOROPYRAMINE
     Indication: Hypersensitivity
  16. CHLOROPYRAMINE [Concomitant]
     Active Substance: CHLOROPYRAMINE
     Route: 065
  17. METHYLPREDNISOLONE [Concomitant]
     Active Substance: METHYLPREDNISOLONE
  18. METHYLPREDNISOLONE [Concomitant]
     Active Substance: METHYLPREDNISOLONE
     Route: 065
  19. DEXAMETHASONE [Concomitant]
     Active Substance: DEXAMETHASONE
  20. DEXAMETHASONE [Concomitant]
     Active Substance: DEXAMETHASONE
     Route: 065
  21. ALBUTEROL [Concomitant]
     Active Substance: ALBUTEROL
  22. ALBUTEROL [Concomitant]
     Active Substance: ALBUTEROL
     Route: 065
  23. Genolar [Concomitant]
  24. Genolar [Concomitant]
     Route: 065
  25. XOLAIR [Concomitant]
     Active Substance: OMALIZUMAB
     Indication: Asthma
     Dosage: 600 MG (4 SYRINGES) ONCE EVERY 28 DAYS
  26. XOLAIR [Concomitant]
     Active Substance: OMALIZUMAB
     Dosage: 600 MG (4 SYRINGES) ONCE EVERY 28 DAYS
     Route: 065
  27. FENOTEROL HYDROBROMIDE\IPRATROPIUM BROMIDE [Concomitant]
     Active Substance: FENOTEROL HYDROBROMIDE\IPRATROPIUM BROMIDE

REACTIONS (2)
  - Asthma [Unknown]
  - Drug ineffective [Unknown]
